FAERS Safety Report 8450247-2 (Version None)
Quarter: 2012Q2

REPORT INFORMATION
  Report Type: 
  Country: None (occurrence: None)
  Receive Date: 20120613
  Receipt Date: 20120529
  Transmission Date: 20120825
  Serious: Yes (Hospitalization, Other)
  Sender: FDA-Public Use
  Company Number: 2012P1035656

PATIENT
  Sex: Male

DRUGS (1)
  1. CEFUROXIME [Suspect]
     Dates: start: 20100510

REACTIONS (5)
  - FATIGUE [None]
  - DRUG HYPERSENSITIVITY [None]
  - ANAPHYLACTIC SHOCK [None]
  - OXYGEN SATURATION DECREASED [None]
  - CARDIAC DISORDER [None]
